FAERS Safety Report 15463521 (Version 1)
Quarter: 2018Q4

REPORT INFORMATION
  Report Type: Spontaneous
  Country: US (occurrence: US)
  Receive Date: 20181004
  Receipt Date: 20181004
  Transmission Date: 20190204
  Serious: No
  Sender: FDA-Public Use
  Company Number: US-ASTRAZENECA-2018SF18455

PATIENT
  Age: 66 Year
  Sex: Female
  Weight: 77.1 kg

DRUGS (6)
  1. MECLIZINE [Concomitant]
     Active Substance: MECLIZINE HYDROCHLORIDE
     Indication: VERTIGO
     Dosage: 25.0MG AS REQUIRED
  2. CALCIUM [Concomitant]
     Active Substance: CALCIUM
  3. VITAMIN D3 [Concomitant]
     Active Substance: CHOLECALCIFEROL
  4. ELETRIPTAN. [Concomitant]
     Active Substance: ELETRIPTAN
     Indication: HEADACHE
     Dosage: 40.0MG AS REQUIRED
  5. TUDORZA PRESSAIR [Suspect]
     Active Substance: ACLIDINIUM BROMIDE
     Dosage: 400.0UG NOT APPLICABLE
     Route: 055
     Dates: start: 2017
  6. PAROXETINE. [Concomitant]
     Active Substance: PAROXETINE
     Indication: ANXIETY
     Dates: start: 1991

REACTIONS (4)
  - Intentional product misuse [Not Recovered/Not Resolved]
  - Vertigo [Unknown]
  - Headache [Unknown]
  - Device malfunction [Unknown]

NARRATIVE: CASE EVENT DATE: 2017
